FAERS Safety Report 10174148 (Version 2)
Quarter: 2014Q2

REPORT INFORMATION
  Report Type: Report from Study
  Country: ZA (occurrence: ZA)
  Receive Date: 20140515
  Receipt Date: 20140527
  Transmission Date: 20141212
  Serious: Yes (Hospitalization)
  Sender: FDA-Public Use
  Company Number: ZA-NOVOPROD-409851

PATIENT
  Age: 73 Year
  Sex: Male
  Weight: 128 kg

DRUGS (7)
  1. NOVOMIX 30 FLEXPEN [Suspect]
     Indication: TYPE 2 DIABETES MELLITUS
     Dosage: 22 IU, BID22 IU(BREAKFAST) 22 IU(SUPPER)
     Route: 058
  2. GLUCOPHAGE [Concomitant]
     Indication: TYPE 2 DIABETES MELLITUS
     Dosage: UNK
     Route: 048
  3. BILOCOR [Concomitant]
     Indication: HYPERTENSION
     Dosage: UNK
     Route: 065
  4. PURESIS [Concomitant]
     Indication: HYPERTENSION
     Dosage: UNK
     Route: 065
  5. PLENISH-K [Concomitant]
     Indication: ELECTROLYTE SUBSTITUTION THERAPY
     Dosage: UNK
     Route: 065
  6. ADCO ZETOMAX CO [Concomitant]
     Indication: HYPERTENSION
     Dosage: UNK
  7. WARFARIN [Concomitant]
     Dosage: UNK
     Route: 065

REACTIONS (1)
  - Subcutaneous abscess [Recovered/Resolved]
